FAERS Safety Report 5503401-3 (Version None)
Quarter: 2007Q4

REPORT INFORMATION
  Report Type: 
  Country: None (occurrence: None)
  Receive Date: 20071031
  Receipt Date: 20071019
  Transmission Date: 20080405
  Serious: Yes (Hospitalization)
  Sender: FDA-Public Use
  Company Number: HU-PFIZER INC-2007088459

PATIENT
  Sex: Male
  Weight: 78 kg

DRUGS (1)
  1. CORTEF [Suspect]
     Indication: ADDISON'S DISEASE
     Route: 048

REACTIONS (1)
  - URTICARIA [None]
